FAERS Safety Report 8559901-5 (Version None)
Quarter: 2012Q3

REPORT INFORMATION
  Report Type: 
  Country: None (occurrence: None)
  Receive Date: 20120802
  Receipt Date: 20120730
  Transmission Date: 20120928
  Serious: Yes (Hospitalization, Other)
  Sender: FDA-Public Use
  Company Number: PHHY2012AU061373

PATIENT
  Sex: Male

DRUGS (6)
  1. ATENOLOL [Concomitant]
     Indication: HYPERTENSION
     Dosage: 50 MG, QD
     Route: 048
  2. FLUOXETINE HCL [Concomitant]
     Indication: DEPRESSION
     Dosage: 40 MG, DAILY
     Route: 048
  3. ACETAMINOPHEN [Concomitant]
     Indication: PAIN
     Dosage: 1 G, QID PRN
     Route: 048
     Dates: start: 20120701
  4. CLOMIPRAMINE HCL [Concomitant]
     Indication: DEPRESSION
     Dosage: 50 MG, QHS
     Route: 048
  5. ESOMEPRAZOLE [Concomitant]
     Indication: GASTROOESOPHAGEAL REFLUX DISEASE
     Dosage: 40 MG, BID
     Route: 048
  6. CLOZARIL [Suspect]
     Indication: SCHIZOPHRENIA
     Dosage: 500 MG,
     Route: 048
     Dates: start: 20050913

REACTIONS (7)
  - ABDOMINAL PAIN [None]
  - VOMITING [None]
  - DIARRHOEA [None]
  - INTESTINAL OBSTRUCTION [None]
  - NAUSEA [None]
  - C-REACTIVE PROTEIN INCREASED [None]
  - ANTIPSYCHOTIC DRUG LEVEL INCREASED [None]
